FAERS Safety Report 10170824 (Version 2)
Quarter: 2014Q2

REPORT INFORMATION
  Report Type: Spontaneous
  Country: JP (occurrence: JP)
  Receive Date: 20140514
  Receipt Date: 20140613
  Transmission Date: 20141212
  Serious: Yes (Hospitalization)
  Sender: FDA-Public Use
  Company Number: JP-BRISTOL-MYERS SQUIBB COMPANY-20735411

PATIENT
  Age: 61 Year
  Sex: Male

DRUGS (8)
  1. ABILIFY TABS [Suspect]
     Indication: DEPRESSION
     Dosage: DOSE STARTED WITH 3MG:28MAR-10APR14:14DAYS?6 MG START DATE:11APR-21APR14:11DAYS
     Route: 048
     Dates: start: 20140328, end: 20140421
  2. CYMBALTA [Concomitant]
     Dosage: CAPSULE
     Dates: start: 20130918, end: 20140421
  3. GANATON [Concomitant]
     Dosage: TABLET
     Dates: start: 20130918, end: 20140421
  4. ROHYPNOL [Concomitant]
     Dosage: TABLET
     Dates: start: 20130918
  5. ALPRAZOLAM [Concomitant]
     Dosage: TABLET
     Dates: start: 20130925, end: 20140421
  6. SENNOSIDE A+B [Concomitant]
     Dosage: TABLET
     Dates: start: 20140328, end: 20140426
  7. HOCHU-EKKI-TO [Concomitant]
     Dosage: GRANULES
     Dates: start: 20140328, end: 20140421
  8. HALCION [Concomitant]
     Dosage: TABLET
     Dates: start: 20140411

REACTIONS (3)
  - Dehydration [Unknown]
  - Pneumonia aspiration [Recovered/Resolved]
  - Dysphagia [Recovered/Resolved]
